FAERS Safety Report 24997903 (Version 2)
Quarter: 2025Q1

REPORT INFORMATION
  Report Type: Spontaneous
  Country: US (occurrence: US)
  Receive Date: 20250222
  Receipt Date: 20250324
  Transmission Date: 20250409
  Serious: No
  Sender: SANOFI AVENTIS
  Company Number: US-SA-2025SA042141

PATIENT
  Age: 68 Year
  Sex: Male
  Weight: 95.25 kg

DRUGS (4)
  1. DUPIXENT [Suspect]
     Active Substance: DUPILUMAB
     Indication: Dermatitis atopic
     Dosage: 300 MG, QOW
     Route: 058
     Dates: start: 202409
  2. CREATINE [Concomitant]
     Active Substance: CREATINE
  3. WHEY [Concomitant]
     Active Substance: WHEY
  4. NIACIN [Concomitant]
     Active Substance: NIACIN

REACTIONS (1)
  - No adverse event [Unknown]
